FAERS Safety Report 24956553 (Version 2)
Quarter: 2025Q1

REPORT INFORMATION
  Report Type: Spontaneous
  Country: US (occurrence: US)
  Receive Date: 20250211
  Receipt Date: 20250221
  Transmission Date: 20250409
  Serious: Yes (Other)
  Sender: VERTEX
  Company Number: US-VERTEX PHARMACEUTICALS-2025-002081

PATIENT
  Sex: Female
  Weight: 71 kg

DRUGS (9)
  1. TRIKAFTA [Suspect]
     Active Substance: ELEXACAFTOR\IVACAFTOR\TEZACAFTOR
     Indication: Cystic fibrosis
     Dosage: 2 ORANGE TABS IN PM; 1 BLUE TAB IN AM
     Route: 048
     Dates: start: 20210921, end: 20240319
  2. TRIKAFTA [Suspect]
     Active Substance: ELEXACAFTOR\IVACAFTOR\TEZACAFTOR
     Dosage: UNKNOWN DOSAGE REGIMEN
     Route: 048
     Dates: start: 20241202
  3. TRIKAFTA [Suspect]
     Active Substance: ELEXACAFTOR\IVACAFTOR\TEZACAFTOR
     Dosage: 1 TAB IN AM, 2 TAB IN PM
     Route: 048
  4. ZOFRAN [Concomitant]
     Active Substance: ONDANSETRON HYDROCHLORIDE
     Indication: Nausea
  5. ZOFRAN [Concomitant]
     Active Substance: ONDANSETRON HYDROCHLORIDE
     Indication: Vomiting
  6. PULMOZYME [Concomitant]
     Active Substance: DORNASE ALFA
  7. LEVALBUTEROL [Concomitant]
     Active Substance: LEVALBUTEROL
  8. DIETARY SUPPLEMENT [Concomitant]
     Active Substance: DIETARY SUPPLEMENT
     Route: 048
     Dates: start: 20231026, end: 20240319
  9. VITAMIN D3 [Concomitant]
     Active Substance: CHOLECALCIFEROL
     Dates: start: 20221206

REACTIONS (15)
  - Cough [Unknown]
  - Irritability [Unknown]
  - Nausea [Recovered/Resolved]
  - Presyncope [Unknown]
  - Head injury [Unknown]
  - Somnolence [Unknown]
  - Skin swelling [Unknown]
  - Syncope [Unknown]
  - Scalp haematoma [Unknown]
  - Viral infection [Unknown]
  - Nasal congestion [Unknown]
  - Post-traumatic epilepsy [Recovered/Resolved]
  - Abnormal behaviour [Recovered/Resolved]
  - Fall [Recovered/Resolved]
  - Concussion [Recovered/Resolved]

NARRATIVE: CASE EVENT DATE: 20230101
